FAERS Safety Report 5723440-7 (Version None)
Quarter: 2008Q2

REPORT INFORMATION
  Report Type: 
  Country: None (occurrence: None)
  Receive Date: 20080430
  Receipt Date: 20080422
  Transmission Date: 20081010
  Serious: Yes (Hospitalization)
  Sender: FDA-Public Use
  Company Number: US-BAYER-200816236NA

PATIENT
  Age: 81 Year
  Sex: Female

DRUGS (5)
  1. AVELOX [Suspect]
     Indication: BRONCHITIS
     Dosage: TOTAL DAILY DOSE: 400 MG  UNIT DOSE: 400 MG
     Route: 048
     Dates: start: 20080224
  2. TEVETEN [Concomitant]
  3. TIAZAC [Concomitant]
  4. TAMIFLU [Concomitant]
  5. PRILOSEC [Concomitant]

REACTIONS (4)
  - HAEMATOCHEZIA [None]
  - OROPHARYNGEAL BLISTERING [None]
  - RASH [None]
  - THROMBOCYTOPENIA [None]
